FAERS Safety Report 6011377-8 (Version None)
Quarter: 2008Q4

REPORT INFORMATION
  Report Type: 
  Country: None (occurrence: None)
  Receive Date: 20081216
  Receipt Date: 20081203
  Transmission Date: 20090506
  Serious: Yes (Hospitalization)
  Sender: FDA-Public Use
  Company Number: 234232J08USA

PATIENT
  Age: 57 Year
  Sex: Female

DRUGS (3)
  1. REBIF [Suspect]
     Indication: MULTIPLE SCLEROSIS
     Dosage: 44 MCG, 3 IN 1 WEEKS, SUBCUTANEOUS
     Route: 058
     Dates: start: 20041006
  2. FELODIPINE [Concomitant]
  3. CYTOXAN [Concomitant]

REACTIONS (6)
  - CHOLELITHIASIS [None]
  - INJECTION SITE ERYTHEMA [None]
  - INJECTION SITE MASS [None]
  - INJECTION SITE NECROSIS [None]
  - INJECTION SITE PAIN [None]
  - MUSCLE SPASMS [None]
